FAERS Safety Report 5303336-5 (Version None)
Quarter: 2007Q2

REPORT INFORMATION
  Report Type: 
  Country: None (occurrence: None)
  Receive Date: 20070420
  Receipt Date: 20070409
  Transmission Date: 20071010
  Serious: Yes (Hospitalization)
  Sender: FDA-Public Use
  Company Number: CG-MERCK-0704USA01404

PATIENT
  Age: 38 Year
  Sex: Male
  Weight: 70 kg

DRUGS (1)
  1. STROMECTOL [Suspect]
     Route: 048
     Dates: start: 20070120, end: 20070120

REACTIONS (9)
  - ASTHENIA [None]
  - CHILLS [None]
  - DEPRESSED LEVEL OF CONSCIOUSNESS [None]
  - HAEMOPTYSIS [None]
  - HEADACHE [None]
  - HYPOTENSION [None]
  - PRODUCTIVE COUGH [None]
  - PYREXIA [None]
  - VERTIGO [None]
